FAERS Safety Report 5060352-9 (Version None)
Quarter: 2006Q3

REPORT INFORMATION
  Report Type: 
  Country: None (occurrence: None)
  Receive Date: 20060720
  Receipt Date: 20060711
  Transmission Date: 20061208
  Serious: Yes (Death, Hospitalization, Other)
  Sender: FDA-Public Use
  Company Number: 2006BH011781

PATIENT
  Age: 21 Year
  Sex: Male
  Weight: 60 kg

DRUGS (4)
  1. DIANEAL [Suspect]
     Indication: RENAL FAILURE CHRONIC
     Dosage: 2000 ML; 5X A DAY; IP; SEE IMAGE
     Route: 033
     Dates: start: 19960101, end: 20030611
  2. DIANEAL [Suspect]
     Indication: RENAL FAILURE CHRONIC
     Dosage: 2000 ML; 5X A DAY; IP; SEE IMAGE
     Route: 033
     Dates: start: 19960101, end: 20030611
  3. DIANEAL [Suspect]
     Indication: RENAL FAILURE CHRONIC
     Dosage: 2000 ML; 5X A DAY; IP; SEE IMAGE
     Route: 033
     Dates: start: 19960101, end: 20030611
  4. DIANEAL [Suspect]
     Indication: RENAL FAILURE CHRONIC
     Dosage: 2000 ML; 5X A DAY; IP; SEE IMAGE
     Route: 033
     Dates: start: 19960101, end: 20030611

REACTIONS (3)
  - ILEUS [None]
  - PERITONITIS [None]
  - SCLEROSING ENCAPSULATING PERITONITIS [None]
